FAERS Safety Report 4723706-3 (Version None)
Quarter: 2005Q3

REPORT INFORMATION
  Report Type: 
  Country: None (occurrence: None)
  Receive Date: 20050722
  Receipt Date: 20050707
  Transmission Date: 20060218
  Serious: Yes (Hospitalization)
  Sender: FDA-Public Use
  Company Number: 200510289BFR

PATIENT
  Age: 67 Year
  Sex: Male
  Weight: 72 kg

DRUGS (9)
  1. KOGENATE FS [Suspect]
     Indication: SURGERY
     Dosage: 3 KIU, TOTAL DAILY, INTRAVENOU
     Route: 042
     Dates: start: 20041126, end: 20041213
  2. KOGENATE FS [Suspect]
     Dosage: INTRAVENOUS
     Route: 042
  3. KOGENATE FS [Suspect]
     Dosage: INTRAVENOUS
     Route: 042
  4. KOGENATE FS [Suspect]
     Dosage: INTRAVENOUS
     Route: 042
  5. KOGENATE FS [Suspect]
     Dosage: INTRAVENOUS
     Route: 042
  6. KOGENATE FS [Suspect]
     Dosage: INTRAVENOUS
     Route: 042
  7. HELIXATE FS [Suspect]
     Indication: SURGERY
     Dosage: 2 KIU, TOTAL DAILY, INTRAVENOUS
     Route: 042
     Dates: start: 20041122
  8. HELIXATE FS [Suspect]
     Indication: SURGERY
     Dosage: 3 KIU, TOTAL DAILY, INTRAVENOU
     Route: 042
     Dates: start: 20041124, end: 20041126
  9. HELIXATE FS [Suspect]

REACTIONS (5)
  - CHOLECYSTITIS ACUTE [None]
  - DRUG INEFFECTIVE [None]
  - FACTOR VIII INHIBITION [None]
  - HAEMATOMA [None]
  - PERICARDIAL HAEMORRHAGE [None]
